FAERS Safety Report 5351175-1 (Version None)
Quarter: 2007Q2

REPORT INFORMATION
  Report Type: 
  Country: None (occurrence: None)
  Receive Date: 20070608
  Receipt Date: 20070521
  Transmission Date: 20071010
  Serious: Yes (Hospitalization)
  Sender: FDA-Public Use
  Company Number: HR-BRISTOL-MYERS SQUIBB COMPANY-13807037

PATIENT
  Age: 18 Year
  Sex: Male

DRUGS (2)
  1. ARIPIPRAZOLE [Suspect]
     Indication: SCHIZOPHRENIA
     Route: 048
     Dates: start: 20061109, end: 20070520
  2. FLUPHENAZINE [Concomitant]

REACTIONS (1)
  - SCHIZOPHRENIA [None]
